FAERS Safety Report 11867412 (Version 2)
Quarter: 2017Q1

REPORT INFORMATION
  Report Type: Report from Study
  Country: US (occurrence: US)
  Receive Date: 20151224
  Receipt Date: 20170323
  Transmission Date: 20170428
  Serious: Yes (Hospitalization)
  Sender: FDA-Public Use
  Company Number: US-SA-2015SA213211

PATIENT
  Age: 64 Year
  Sex: Female
  Weight: 60.78 kg

DRUGS (13)
  1. SOLU-MEDROL [Suspect]
     Active Substance: METHYLPREDNISOLONE SODIUM SUCCINATE
     Route: 065
     Dates: start: 20150317, end: 20150319
  2. AMPYRA [Concomitant]
     Active Substance: DALFAMPRIDINE
     Dosage: 50 MG 1-2 BID
  3. ALEMTUZUMAB [Suspect]
     Active Substance: ALEMTUZUMAB
     Indication: MULTIPLE SCLEROSIS
     Route: 042
     Dates: start: 20150317, end: 20150319
  4. ACYCLOVIR. [Concomitant]
     Active Substance: ACYCLOVIR
  5. HYDROCHLOROTHIAZIDE. [Concomitant]
     Active Substance: HYDROCHLOROTHIAZIDE
  6. RAMIPRIL. [Concomitant]
     Active Substance: RAMIPRIL
  7. METOPROLOL. [Concomitant]
     Active Substance: METOPROLOL
  8. TEMAZEPAM. [Concomitant]
     Active Substance: TEMAZEPAM
     Dosage: QHS
  9. BACLOFEN. [Concomitant]
     Active Substance: BACLOFEN
  10. NEXIUM [Concomitant]
     Active Substance: ESOMEPRAZOLE MAGNESIUM
  11. TRAMADOL. [Concomitant]
     Active Substance: TRAMADOL
  12. DEPAKOTE ER [Concomitant]
     Active Substance: DIVALPROEX SODIUM
     Dosage: 1-2 NIGHTLY
  13. TIZANIDINE. [Concomitant]
     Active Substance: TIZANIDINE
     Dosage: 4 MG 1-2 TID

REACTIONS (4)
  - Dehydration [Unknown]
  - Acute kidney injury [Unknown]
  - Vomiting [Unknown]
  - Nausea [Unknown]

NARRATIVE: CASE EVENT DATE: 2015
